FAERS Safety Report 7511783-6 (Version None)
Quarter: 2011Q2

REPORT INFORMATION
  Report Type: 
  Country: None (occurrence: None)
  Receive Date: 20110531
  Receipt Date: 20110520
  Transmission Date: 20111010
  Serious: Yes (Hospitalization)
  Sender: FDA-Public Use
  Company Number: JP-SANOFI-AVENTIS-2011SA029623

PATIENT
  Age: 46 Year
  Sex: Male
  Weight: 74.5 kg

DRUGS (11)
  1. OXALIPLATIN [Suspect]
     Route: 041
     Dates: start: 20110422, end: 20110422
  2. TS-1 [Concomitant]
     Indication: GASTRIC CANCER
     Route: 048
     Dates: start: 20110218, end: 20110304
  3. TS-1 [Concomitant]
     Route: 048
     Dates: start: 20110422, end: 20110506
  4. PRIMPERAN TAB [Concomitant]
     Indication: NAUSEA
     Route: 048
     Dates: start: 20110222, end: 20110506
  5. OXALIPLATIN [Suspect]
     Indication: GASTRIC CANCER
     Route: 041
     Dates: start: 20110218, end: 20110218
  6. PURSENNID /SCH/ [Concomitant]
     Indication: CONSTIPATION
     Route: 048
     Dates: start: 20110419, end: 20110505
  7. NAIXAN [Concomitant]
     Indication: PAIN
     Route: 048
     Dates: start: 20110419, end: 20110506
  8. GASMOTIN [Concomitant]
     Indication: NAUSEA
     Route: 048
     Dates: start: 20110428, end: 20110506
  9. URSO 250 [Concomitant]
     Indication: LIVER DISORDER
     Route: 048
     Dates: start: 20110311, end: 20110506
  10. MAGNESIUM OXIDE [Concomitant]
     Indication: CONSTIPATION
     Route: 048
     Dates: start: 20110408, end: 20110506
  11. RABEPRAZOLE SODIUM [Concomitant]
     Indication: GASTRIC CANCER
     Route: 048
     Dates: start: 20110222, end: 20110506

REACTIONS (2)
  - HYDRONEPHROSIS [None]
  - RENAL IMPAIRMENT [None]
